FAERS Safety Report 24353093 (Version 1)
Quarter: 2024Q3

REPORT INFORMATION
  Report Type: Report from Study
  Country: EG (occurrence: EG)
  Receive Date: 20240923
  Receipt Date: 20240923
  Transmission Date: 20241017
  Serious: No
  Sender: ROCHE
  Company Number: EG-ROCHE-3472368

PATIENT

DRUGS (1)
  1. HERCEPTIN [Suspect]
     Active Substance: TRASTUZUMAB
     Indication: Breast cancer
     Route: 065

REACTIONS (7)
  - Ejection fraction decreased [Unknown]
  - Echocardiogram abnormal [Unknown]
  - Cardiac ventricular disorder [Unknown]
  - Fluid retention [Unknown]
  - Cardiotoxicity [Unknown]
  - Toxic cardiomyopathy [Unknown]
  - Pericardial disease [Unknown]
